FAERS Safety Report 4586743-8 (Version None)
Quarter: 2005Q1

REPORT INFORMATION
  Report Type: 
  Country: None (occurrence: None)
  Receive Date: 20050214
  Receipt Date: 20050128
  Transmission Date: 20050727
  Serious: No
  Sender: FDA-Public Use
  Company Number: MAG-2005-0000333

PATIENT
  Age: 74 Year
  Sex: Female

DRUGS (8)
  1. OXYCONTIN [Suspect]
     Dosage: 5 MG, BID, ORAL
     Route: 048
     Dates: start: 20041111
  2. LOXOPROFEN (LOXOPROFEN) [Concomitant]
  3. LAC B          (LACTOBACILLUS BIFIDUS, LYOPHILIZED) [Concomitant]
  4. MARZULENE  (SODIUM GUALENATE) [Concomitant]
  5. MAGNESIUM OXIDE         (MAGNESIUM OXIDE) [Concomitant]
  6. NOVAMIN         (PROCHLORPERAZINE) [Concomitant]
  7. LASIX [Concomitant]
  8. GEMZAR [Concomitant]

REACTIONS (4)
  - DEMENTIA [None]
  - GLUCOSE TOLERANCE IMPAIRED [None]
  - OEDEMA [None]
  - URINARY TRACT INFECTION [None]
